FAERS Safety Report 24632880 (Version 1)
Quarter: 2024Q4

REPORT INFORMATION
  Report Type: Spontaneous
  Country: US (occurrence: US)
  Receive Date: 20241118
  Receipt Date: 20241118
  Transmission Date: 20250114
  Serious: No
  Sender: PERRIGO
  Company Number: US-PERRIGO-24US007517

PATIENT
  Age: 25 Year
  Sex: Female
  Weight: 47.619 kg

DRUGS (4)
  1. OPILL [Suspect]
     Active Substance: NORGESTREL
     Indication: Contraception
     Dosage: 0.075 MG, QD
     Route: 048
     Dates: start: 20240619, end: 202407
  2. OPILL [Suspect]
     Active Substance: NORGESTREL
     Dosage: 0.075 MG, QD
     Route: 048
     Dates: start: 202407
  3. PROPRANOLOL [Concomitant]
     Active Substance: PROPRANOLOL HYDROCHLORIDE
     Indication: Panic attack
     Dosage: PRN
     Route: 065
     Dates: start: 202405
  4. IBUPROFEN [Concomitant]
     Active Substance: IBUPROFEN
     Indication: Menstrual cycle management
     Dosage: UNK
     Route: 065
     Dates: start: 2024

REACTIONS (3)
  - Heavy menstrual bleeding [Not Recovered/Not Resolved]
  - Intermenstrual bleeding [Recovered/Resolved]
  - Fatigue [Recovered/Resolved]

NARRATIVE: CASE EVENT DATE: 20240726
